FAERS Safety Report 5266725-3 (Version None)
Quarter: 2007Q1

REPORT INFORMATION
  Report Type: 
  Country: None (occurrence: None)
  Receive Date: 20070312
  Receipt Date: 20070301
  Transmission Date: 20070707
  Serious: Yes (Other)
  Sender: FDA-Public Use
  Company Number: 430004N07JPN

PATIENT
  Age: 56 Year
  Sex: Male

DRUGS (10)
  1. NOVANTRONE [Suspect]
     Dosage: UNKNOWN, UNKNOWN, INTRAVENOUS (NOT OTHERWISE SPECIFIED)
     Route: 042
     Dates: start: 20060801, end: 20060805
  2. NOVANTRONE [Suspect]
     Dosage: UNKNOWN, UNKNOWN, INTRAVENOUS (NOT OTHERWISE SPECIFIED)
     Route: 042
     Dates: start: 20060830, end: 20060830
  3. MYLOTARG [Suspect]
     Dosage: 9 MG/M2, 1 IN 1 DAYS, INTRAVENOUS (NOT OTHERWISE SPECIFIED)
     Route: 042
     Dates: start: 20060327, end: 20060327
  4. MYLOTARG [Suspect]
     Dosage: 9 MG/M2, 1 IN 1 DAYS, INTRAVENOUS (NOT OTHERWISE SPECIFIED)
     Route: 042
     Dates: start: 20060426, end: 20060426
  5. CYTARABINE [Suspect]
     Dosage: UNKNOWN, UNKNOWN, INTRAVENOUS (NOT OTHERWISE SPECIFIED)
     Route: 042
     Dates: start: 20060529, end: 20060602
  6. CYTARABINE [Suspect]
     Dosage: UNKNOWN, UNKNOWN, INTRAVENOUS (NOT OTHERWISE SPECIFIED)
     Route: 042
     Dates: start: 20060719, end: 20060719
  7. ENOCITABINE (ENOCITABINE) [Suspect]
     Dosage: UNKNOWN, UNKNOWN, INTRAVENOUS (NOT OTHERWISE SPECIFIED)
     Route: 042
     Dates: start: 20060801, end: 20060805
  8. KELFIPRIM [Concomitant]
  9. ITRACONAZOLE [Concomitant]
  10. ALLOPURINOL [Concomitant]

REACTIONS (15)
  - ACUTE MYELOID LEUKAEMIA [None]
  - BLOOD ALKALINE PHOSPHATASE ABNORMAL [None]
  - FEBRILE NEUTROPENIA [None]
  - GINGIVAL BLEEDING [None]
  - HAEMOGLOBIN DECREASED [None]
  - HYPERSENSITIVITY [None]
  - HYPOALBUMINAEMIA [None]
  - LYMPHOCYTE COUNT DECREASED [None]
  - MALIGNANT NEOPLASM PROGRESSION [None]
  - NAUSEA [None]
  - NEUTROPHIL COUNT DECREASED [None]
  - PETECHIAE [None]
  - PLATELET COUNT DECREASED [None]
  - PYREXIA [None]
  - WHITE BLOOD CELL COUNT DECREASED [None]
